FAERS Safety Report 5211181-4 (Version None)
Quarter: 2006Q4

REPORT INFORMATION
  Report Type: 
  Country: None (occurrence: None)
  Receive Date: 20061114
  Receipt Date: 20060920
  Transmission Date: 20070319
  Serious: No
  Sender: FDA-Public Use
  Company Number: S06-USA-03865-01

PATIENT
  Age: 97 Year
  Sex: Male

DRUGS (4)
  1. NAMENDA [Suspect]
     Indication: DEMENTIA ALZHEIMER'S TYPE
     Dosage: 5 MG QHS PO
     Route: 048
     Dates: start: 20060901, end: 20060918
  2. ARICEPT [Concomitant]
  3. LISINOPRIL [Concomitant]
  4. ALLOPURINOL [Concomitant]

REACTIONS (3)
  - BLOOD BLISTER [None]
  - CONTUSION [None]
  - PETECHIAE [None]
